FAERS Safety Report 17515508 (Version 1)
Quarter: 2020Q1

REPORT INFORMATION
  Report Type: Spontaneous
  Country: JP (occurrence: JP)
  Receive Date: 20200309
  Receipt Date: 20200309
  Transmission Date: 20200409
  Serious: Yes (Other)
  Sender: FDA-Public Use
  Company Number: JP-UCBSA-2020009320

PATIENT
  Age: 8 Decade
  Sex: Male

DRUGS (6)
  1. VIMPAT [Suspect]
     Active Substance: LACOSAMIDE
     Dosage: 50 MILLIGRAM, 2X/DAY (BID)
     Route: 048
  2. AMENALIEF [Concomitant]
     Active Substance: AMENAMEVIR
     Indication: HERPES ZOSTER
     Dosage: UNK
     Route: 048
  3. VIMPAT [Suspect]
     Active Substance: LACOSAMIDE
     Dosage: 100 MILLIGRAM, 2X/DAY (BID)
     Route: 048
  4. FYCOMPA [Concomitant]
     Active Substance: PERAMPANEL
     Indication: PARTIAL SEIZURES
     Dosage: 2 MG DAILY
     Route: 048
  5. VIMPAT [Suspect]
     Active Substance: LACOSAMIDE
     Indication: PARTIAL SEIZURES
     Dosage: 50 MILLIGRAM, 2X/DAY (BID)
     Route: 048
  6. ELIQUIS [Concomitant]
     Active Substance: APIXABAN
     Indication: ATRIAL FIBRILLATION
     Dosage: UNK UNK, 2X/DAY (BID)
     Route: 048

REACTIONS (3)
  - Generalised tonic-clonic seizure [Unknown]
  - Sedation complication [Recovered/Resolved]
  - Herpes zoster [Unknown]
